FAERS Safety Report 9705224 (Version 1)
Quarter: 2013Q4

REPORT INFORMATION
  Report Type: Spontaneous
  Country: US (occurrence: US)
  Receive Date: 20131122
  Receipt Date: 20131122
  Transmission Date: 20140711
  Serious: Yes (Hospitalization)
  Sender: FDA-Public Use
  Company Number: US-BRISTOL-MYERS SQUIBB COMPANY-19801356

PATIENT
  Age: 58 Year
  Sex: Female
  Weight: 115.64 kg

DRUGS (4)
  1. BYETTA [Suspect]
     Indication: TYPE 2 DIABETES MELLITUS
     Dosage: INITIAL DOSE 5MCG THEN INCREASED TO 10MCG
     Route: 058
     Dates: start: 2010
  2. METFORMIN HCL [Suspect]
  3. HUMULIN 70/30 [Suspect]
     Route: 058
  4. PROBIOTICA [Concomitant]

REACTIONS (11)
  - Uterine cancer [Recovering/Resolving]
  - Ovarian cancer [Recovering/Resolving]
  - Back pain [Unknown]
  - Dehydration [Not Recovered/Not Resolved]
  - Viral infection [Unknown]
  - Diarrhoea [Not Recovered/Not Resolved]
  - Drug dose omission [Unknown]
  - Blood glucose increased [Unknown]
  - Injection site haemorrhage [Unknown]
  - Increased upper airway secretion [Unknown]
  - Cough [Unknown]
